FAERS Safety Report 23341767 (Version 1)
Quarter: 2023Q4

REPORT INFORMATION
  Report Type: Spontaneous
  Country: GB (occurrence: GB)
  Receive Date: 20231227
  Receipt Date: 20231227
  Transmission Date: 20240110
  Serious: Yes (Hospitalization, Other)
  Sender: FDA-Public Use
  Company Number: GB-SCIEGENP-2023SCLIT00820

PATIENT
  Age: 7 Decade
  Sex: Male

DRUGS (2)
  1. RANOLAZINE [Suspect]
     Active Substance: RANOLAZINE
     Indication: Cardiac disorder
     Route: 065
  2. NICORANDIL [Suspect]
     Active Substance: NICORANDIL
     Indication: Cardiac disorder
     Route: 065

REACTIONS (4)
  - Ventricular fibrillation [Recovered/Resolved]
  - Cardiac arrest [Recovered/Resolved]
  - Intentional overdose [Unknown]
  - Suicidal ideation [Unknown]
